FAERS Safety Report 6081770-6 (Version None)
Quarter: 2009Q1

REPORT INFORMATION
  Report Type: 
  Country: None (occurrence: None)
  Receive Date: 20090128
  Receipt Date: 20080821
  Transmission Date: 20090719
  Serious: Yes (Other)
  Sender: FDA-Public Use
  Company Number: ACO_00478_2008

PATIENT
  Age: 77 Year
  Sex: Male

DRUGS (4)
  1. ZANAFLEX [Suspect]
     Indication: GAIT DISTURBANCE
     Dosage: (DF)
     Dates: start: 20080601
  2. PLAVIX [Suspect]
     Indication: MYOCARDIAL INFARCTION
     Dosage: (DF ORAL)
     Route: 048
     Dates: start: 20060101
  3. PLAVIX [Suspect]
     Indication: STENT PLACEMENT
     Dosage: (DF ORAL)
     Route: 048
     Dates: start: 20060101
  4. ACETYLSALICYLIC ACID (UNKNOWN) [Concomitant]

REACTIONS (3)
  - BLOOD PRESSURE DECREASED [None]
  - FATIGUE [None]
  - OFF LABEL USE [None]
